FAERS Safety Report 5890218-3 (Version None)
Quarter: 2008Q3

REPORT INFORMATION
  Report Type: 
  Country: None (occurrence: None)
  Receive Date: 20080919
  Receipt Date: 20080909
  Transmission Date: 20090109
  Serious: Yes (Other)
  Sender: FDA-Public Use
  Company Number: US-PFIZER INC-2008076350

PATIENT
  Sex: Female
  Weight: 64.4 kg

DRUGS (2)
  1. LYRICA [Suspect]
     Indication: NEURALGIA
     Route: 048
     Dates: start: 20080101
  2. ANTIDEPRESSANTS [Concomitant]

REACTIONS (6)
  - INJECTION SITE REACTION [None]
  - NERVE BLOCK [None]
  - NEURITIS [None]
  - OEDEMA PERIPHERAL [None]
  - PAIN [None]
  - WEIGHT INCREASED [None]
